FAERS Safety Report 5471400-6 (Version None)
Quarter: 2007Q3

REPORT INFORMATION
  Report Type: 
  Country: None (occurrence: None)
  Receive Date: 20070928
  Receipt Date: 20060929
  Transmission Date: 20080115
  Serious: No
  Sender: FDA-Public Use
  Company Number: US-BRISTOL-MYERS SQUIBB COMPANY-13525969

PATIENT
  Age: 64 Year
  Sex: Male
  Weight: 89 kg

DRUGS (16)
  1. DEFINITY [Suspect]
     Indication: ECHOCARDIOGRAM
     Dosage: DILUTED DOSE OF DEFINITY 2CC (1.3CC OF DEFINITY IN 8.7CC OF NORMAL SALINE)
     Route: 042
     Dates: start: 20060928
  2. AMBIEN [Concomitant]
  3. AMIODARONE HCL [Concomitant]
  4. AMITRIPTYLINE HCL [Concomitant]
  5. COREG [Concomitant]
  6. FUROSEMIDE [Concomitant]
  7. NEURONTIN [Concomitant]
  8. LANOXIN [Concomitant]
  9. LANTUS [Concomitant]
  10. LEVOXYL [Concomitant]
  11. LIPITOR [Concomitant]
  12. LORAZEPAM [Concomitant]
  13. MOEXIPRIL HCL [Concomitant]
  14. NORVASC [Concomitant]
  15. POTASSIUM CHLORIDE [Concomitant]
  16. WARFARIN [Concomitant]

REACTIONS (2)
  - BLOOD GLUCOSE DECREASED [None]
  - VISION BLURRED [None]
